FAERS Safety Report 4462419-2 (Version None)
Quarter: 2004Q3

REPORT INFORMATION
  Report Type: 
  Country: None (occurrence: None)
  Receive Date: 20040924
  Receipt Date: 20040902
  Transmission Date: 20050211
  Serious: Yes (Hospitalization)
  Sender: FDA-Public Use
  Company Number: D01200403441

PATIENT
  Age: 77 Year
  Sex: Male

DRUGS (8)
  1. OXALIPLATIN [Suspect]
     Dosage: 85 MG/M2 Q2W
     Route: 042
     Dates: start: 20040820, end: 20040820
  2. FLUOROURACIL [Suspect]
     Dosage: 400 MG/M2 AS IV BOLUS THEN 600 MG/M2 AS 22 HOURS CONTINUOUS INFUSION D1 Q2W-D2
     Route: 042
     Dates: start: 20040820, end: 20040821
  3. (SR57746 OR PLACEBO) [Suspect]
     Indication: CHEMOTHERAPY NEUROTOXICITY ATTENUATION
     Dosage: 1 MG QD
     Route: 048
     Dates: start: 20040423, end: 20040901
  4. (SR57746 OR PLACEBO) [Suspect]
     Indication: COLORECTAL CANCER METASTATIC
     Dosage: 1 MG QD
     Route: 048
     Dates: start: 20040423, end: 20040901
  5. LEUCOVORIN CALCIUM [Suspect]
     Dosage: 200 MG/M2 AS 2 HOURS INFUSION ON D1-D2 Q2W
     Route: 042
     Dates: start: 20040820, end: 20040821
  6. BENDROFLUMETHIAZIDE [Concomitant]
  7. ATENOLOL [Concomitant]
  8. CLEXANE (HEPARIN-FRACTION) [Concomitant]

REACTIONS (6)
  - CONVULSION [None]
  - HYPERGLYCAEMIA [None]
  - HYPOAESTHESIA [None]
  - MUSCLE CRAMP [None]
  - MUSCLE SPASMS [None]
  - SIMPLE PARTIAL SEIZURES [None]
